FAERS Safety Report 20038437 (Version 2)
Quarter: 2021Q4

REPORT INFORMATION
  Report Type: Spontaneous
  Country: US (occurrence: US)
  Receive Date: 20211105
  Receipt Date: 20211117
  Transmission Date: 20220303
  Serious: Yes (Hospitalization)
  Sender: FDA-Public Use
  Company Number: US-BIOMARINAP-US-2021-139467

PATIENT
  Sex: Female

DRUGS (1)
  1. NAGLAZYME [Suspect]
     Active Substance: GALSULFASE
     Indication: Mucopolysaccharidosis VI
     Dosage: 55 MILLIGRAM, QW
     Route: 042
     Dates: start: 202007

REACTIONS (2)
  - Sepsis [Recovered/Resolved]
  - Device related infection [Recovered/Resolved]
